FAERS Safety Report 5710552-7 (Version None)
Quarter: 2008Q2

REPORT INFORMATION
  Report Type: 
  Country: None (occurrence: None)
  Receive Date: 20080415
  Receipt Date: 20080331
  Transmission Date: 20081010
  Serious: Yes (Hospitalization)
  Sender: FDA-Public Use
  Company Number: 310001L08USA

PATIENT
  Age: 37 Year
  Sex: Female

DRUGS (5)
  1. FOLLITROPIN ALFA (FOLLITROPIN ALFA) [Suspect]
     Indication: IN VITRO FERTILISATION
  2. MENOTROPINS [Suspect]
  3. GNRH ANTAGONIST (HORMONE ANTAGONISTS AND RELATED AGENTS) [Suspect]
  4. CHORIONIC GONADTROPIN [Suspect]
     Dosage: 10000 IU
  5. PROGESTERONE [Concomitant]

REACTIONS (5)
  - BLIGHTED OVUM [None]
  - DRUG EXPOSURE DURING PREGNANCY [None]
  - ECTOPIC PREGNANCY [None]
  - HETEROTOPIC PREGNANCY [None]
  - INTRA-ABDOMINAL HAEMORRHAGE [None]
